FAERS Safety Report 19676211 (Version 1)
Quarter: 2021Q3

REPORT INFORMATION
  Report Type: Spontaneous
  Country: DE (occurrence: DE)
  Receive Date: 20210809
  Receipt Date: 20210809
  Transmission Date: 20211014
  Serious: Yes (Hospitalization)
  Sender: FDA-Public Use
  Company Number: DE-ASTRAZENECA-2021A647498

PATIENT
  Sex: Female
  Weight: 75 kg

DRUGS (12)
  1. MAPROTILIN [Concomitant]
     Active Substance: MAPROTILINE
     Dosage: 75.0MG UNKNOWN
  2. CANDESARTAN. [Concomitant]
     Active Substance: CANDESARTAN
  3. SITAGLIPTIN [Concomitant]
     Active Substance: SITAGLIPTIN
  4. PANTOZOL [Concomitant]
     Active Substance: PANTOPRAZOLE SODIUM
  5. BRILIQUE [Suspect]
     Active Substance: TICAGRELOR
     Indication: ACUTE MYOCARDIAL INFARCTION
     Route: 048
     Dates: start: 20210328, end: 20210706
  6. TORASEMID [Concomitant]
     Active Substance: TORSEMIDE
     Dosage: 1?0?0
  7. ROSUVASTATIN. [Concomitant]
     Active Substance: ROSUVASTATIN
     Route: 065
  8. TAVOR [Concomitant]
  9. NOVALGIN [Concomitant]
  10. METFORMIN [Concomitant]
     Active Substance: METFORMIN HYDROCHLORIDE
  11. ASPIRIN. [Concomitant]
     Active Substance: ASPIRIN
  12. BISOPROLOL [Concomitant]
     Active Substance: BISOPROLOL

REACTIONS (2)
  - Dyspnoea [Recovered/Resolved]
  - Drug intolerance [Recovered/Resolved]

NARRATIVE: CASE EVENT DATE: 202104
